FAERS Safety Report 7926222-0 (Version None)
Quarter: 2011Q4

REPORT INFORMATION
  Report Type: 
  Country: None (occurrence: None)
  Receive Date: 20111118
  Receipt Date: 20111109
  Transmission Date: 20120403
  Serious: Yes (Hospitalization, Other)
  Sender: FDA-Public Use
  Company Number: ES-BIOGENIDEC-2011BI011873

PATIENT
  Age: 51 Year
  Sex: Female
  Weight: 63 kg

DRUGS (3)
  1. ESCITALOPRAM [Concomitant]
     Indication: ANTIDEPRESSANT THERAPY
  2. TYSABRI [Suspect]
     Indication: MULTIPLE SCLEROSIS
     Route: 042
     Dates: start: 20081202, end: 20110307
  3. SIMVASTATIN [Concomitant]
     Dates: start: 20070706

REACTIONS (3)
  - IMMUNE RECONSTITUTION SYNDROME [None]
  - CONVULSION [None]
  - PROGRESSIVE MULTIFOCAL LEUKOENCEPHALOPATHY [None]
